FAERS Safety Report 9287318 (Version 3)
Quarter: 2013Q2

REPORT INFORMATION
  Report Type: Spontaneous
  Country: US (occurrence: US)
  Receive Date: 20130514
  Receipt Date: 20130606
  Transmission Date: 20140414
  Serious: Yes (Hospitalization, Other)
  Sender: FDA-Public Use
  Company Number: US-009507513-0709USA02174

PATIENT
  Sex: Female
  Weight: 71.21 kg

DRUGS (4)
  1. FOSAMAX [Suspect]
     Indication: OSTEOPOROSIS
     Dosage: 70 MG, QW
     Route: 048
     Dates: start: 200102
  2. FOSAMAX [Suspect]
     Indication: OSTEOPENIA
  3. ESTROGENS (UNSPECIFIED) [Concomitant]
  4. BONIVA [Concomitant]
     Dates: start: 200503, end: 200612

REACTIONS (13)
  - Rectocele [Unknown]
  - Cystocele [Unknown]
  - Osteonecrosis of jaw [Unknown]
  - Depression [Unknown]
  - Hypertension [Unknown]
  - Urge incontinence [Unknown]
  - Anxiety [Unknown]
  - Anxiety [Unknown]
  - Depression [Unknown]
  - Stress urinary incontinence [Unknown]
  - Urethral disorder [Unknown]
  - Oestrogen deficiency [Unknown]
  - Bone fragmentation [Unknown]
